FAERS Safety Report 25366135 (Version 1)
Quarter: 2025Q2

REPORT INFORMATION
  Report Type: Spontaneous
  Country: SI (occurrence: SI)
  Receive Date: 20250528
  Receipt Date: 20250528
  Transmission Date: 20250717
  Serious: Yes (Death, Other)
  Sender: JOHNSON AND JOHNSON
  Company Number: SI-JNJFOC-20250524592

PATIENT

DRUGS (1)
  1. TECVAYLI [Suspect]
     Active Substance: TECLISTAMAB-CQYV
     Indication: Plasma cell myeloma
     Route: 065

REACTIONS (13)
  - Plasma cell myeloma [Fatal]
  - Infection [Fatal]
  - Multiple organ dysfunction syndrome [Fatal]
  - Second primary malignancy [Fatal]
  - Cytokine release syndrome [Unknown]
  - Immune effector cell-associated neurotoxicity syndrome [Unknown]
  - Hypogammaglobulinaemia [Unknown]
  - Malignant melanoma [Unknown]
  - Neuroendocrine carcinoma of the skin [Unknown]
  - Pneumonia [Unknown]
  - Pneumocystis jirovecii pneumonia [Unknown]
  - Cytomegalovirus colitis [Unknown]
  - Urinary tract infection [Unknown]
